FAERS Safety Report 15999251 (Version 1)
Quarter: 2019Q1

REPORT INFORMATION
  Report Type: Spontaneous
  Country: US (occurrence: US)
  Receive Date: 20190129
  Receipt Date: 20190129
  Transmission Date: 20190418
  Serious: No
  Sender: FDA-Public Use
  Company Number: None

PATIENT
  Age: 64 Year
  Sex: Female

DRUGS (1)
  1. TALTZ [Suspect]
     Active Substance: IXEKIZUMAB
     Dosage: ?          OTHER  ?
     Route: 058
     Dates: start: 201808

REACTIONS (2)
  - Arthralgia [None]
  - Dry skin [None]

NARRATIVE: CASE EVENT DATE: 20190129
